FAERS Safety Report 24896325 (Version 1)
Quarter: 2025Q1

REPORT INFORMATION
  Report Type: Spontaneous
  Country: US (occurrence: US)
  Receive Date: 20250128
  Receipt Date: 20250128
  Transmission Date: 20250409
  Serious: No
  Sender: MEITHEAL PHARMACEUTICALS
  Company Number: US-MEITHEAL-2024MPSPO00409

PATIENT
  Sex: Male

DRUGS (2)
  1. REGADENOSON [Suspect]
     Active Substance: REGADENOSON
     Indication: Product used for unknown indication
     Route: 065
  2. REGADENOSON [Suspect]
     Active Substance: REGADENOSON

REACTIONS (2)
  - Peripheral swelling [Unknown]
  - Injection site extravasation [Unknown]
